FAERS Safety Report 5310181-3 (Version None)
Quarter: 2007Q2

REPORT INFORMATION
  Report Type: 
  Country: None (occurrence: None)
  Receive Date: 20070423
  Receipt Date: 20070412
  Transmission Date: 20071010
  Serious: Yes (Hospitalization)
  Sender: FDA-Public Use
  Company Number: E2020-01096-SPO-FR

PATIENT
  Age: 90 Year
  Sex: Female

DRUGS (6)
  1. ARICEPT [Suspect]
     Indication: DEMENTIA ALZHEIMER'S TYPE
     Dosage: ORAL
     Route: 048
  2. PROZAC [Suspect]
     Dosage: ORAL
     Route: 048
  3. VALSARTAN [Concomitant]
  4. AMLODIPINE [Concomitant]
  5. MEMANTINE HCL [Concomitant]
  6. PIPAMPERONE [Concomitant]

REACTIONS (1)
  - SINUS BRADYCARDIA [None]
